FAERS Safety Report 11362127 (Version 1)
Quarter: 2015Q3

REPORT INFORMATION
  Report Type: Spontaneous
  Country: TR (occurrence: TR)
  Receive Date: 20150810
  Receipt Date: 20150810
  Transmission Date: 20151125
  Serious: Yes (Other)
  Sender: FDA-Public Use
  Company Number: PHHY2015TR092971

PATIENT
  Age: 10 Year
  Sex: Female

DRUGS (3)
  1. CITALOPRAM [Suspect]
     Active Substance: CITALOPRAM HYDROBROMIDE
     Indication: COMPULSIVE HANDWASHING
     Dosage: 40 MG/D
     Route: 065
  2. CITALOPRAM [Suspect]
     Active Substance: CITALOPRAM HYDROBROMIDE
     Dosage: 60 MG/D
     Route: 065
  3. ARIPIPRAZOLE. [Suspect]
     Active Substance: ARIPIPRAZOLE
     Indication: COMPULSIVE HANDWASHING
     Dosage: 20 MG/D
     Route: 065

REACTIONS (2)
  - Electrocardiogram QT prolonged [Unknown]
  - Condition aggravated [Unknown]
